FAERS Safety Report 10649936 (Version 2)
Quarter: 2015Q1

REPORT INFORMATION
  Report Type: Spontaneous
  Country: US (occurrence: US)
  Receive Date: 20141212
  Receipt Date: 20150317
  Transmission Date: 20150720
  Serious: No
  Sender: FDA-Public Use
  Company Number: US-009507513-1412USA006634

PATIENT
  Age: 3 Year
  Sex: Female

DRUGS (6)
  1. STROMECTOL [Suspect]
     Active Substance: IVERMECTIN
     Indication: FAECES HARD
  2. PERMETHRIN. [Concomitant]
     Active Substance: PERMETHRIN
     Indication: SKIN DISORDER
  3. STROMECTOL [Suspect]
     Active Substance: IVERMECTIN
     Indication: SKIN DISORDER
  4. PERMETHRIN. [Concomitant]
     Active Substance: PERMETHRIN
     Indication: ACARODERMATITIS
     Dosage: 2 COURSES 1 WEEK APART
     Route: 061
  5. STROMECTOL [Suspect]
     Active Substance: IVERMECTIN
     Indication: ACARODERMATITIS
     Dosage: 200 MICROGRAM PER KILOGRAM, QW
     Route: 048
  6. PERMETHRIN. [Concomitant]
     Active Substance: PERMETHRIN
     Indication: FAECES HARD

REACTIONS (2)
  - Inappropriate schedule of drug administration [Unknown]
  - No adverse event [Unknown]
